FAERS Safety Report 23217269 (Version 10)
Quarter: 2025Q3

REPORT INFORMATION
  Report Type: Report from Study
  Country: US (occurrence: US)
  Receive Date: 20231122
  Receipt Date: 20250922
  Transmission Date: 20251020
  Serious: Yes (Other)
  Sender: TAKEDA
  Company Number: US-TAKEDA-2023TUS083514

PATIENT
  Sex: Male
  Weight: 166 kg

DRUGS (6)
  1. LANADELUMAB [Suspect]
     Active Substance: LANADELUMAB
     Indication: Immune system disorder
     Dosage: 300 MILLIGRAM, Q2WEEKS
  2. LANADELUMAB [Suspect]
     Active Substance: LANADELUMAB
     Dosage: 300 MILLIGRAM, 1/WEEK
  3. LANADELUMAB [Suspect]
     Active Substance: LANADELUMAB
  4. ADVAIR HFA [Concomitant]
     Active Substance: FLUTICASONE PROPIONATE\SALMETEROL XINAFOATE
  5. ALBUTEROL SULFATE [Concomitant]
     Active Substance: ALBUTEROL SULFATE
  6. ICATIBANT [Concomitant]
     Active Substance: ICATIBANT ACETATE

REACTIONS (14)
  - Type 2 diabetes mellitus [Unknown]
  - Nasopharyngitis [Unknown]
  - Inappropriate schedule of product administration [Unknown]
  - Product distribution issue [Unknown]
  - Drug hypersensitivity [Recovered/Resolved]
  - Dermatitis contact [Recovered/Resolved]
  - Seasonal allergy [Unknown]
  - Stress [Recovering/Resolving]
  - Insurance issue [Recovered/Resolved]
  - Product use issue [Recovered/Resolved]
  - Product dose omission issue [Recovered/Resolved]
  - Sensitive skin [Recovered/Resolved]
  - Hereditary angioedema [Unknown]
  - Product prescribing issue [Unknown]
